FAERS Safety Report 10871602 (Version 4)
Quarter: 2018Q4

REPORT INFORMATION
  Report Type: Spontaneous
  Country: DE (occurrence: DE)
  Receive Date: 20150226
  Receipt Date: 20181107
  Transmission Date: 20190204
  Serious: Yes (Disabling, Other)
  Sender: FDA-Public Use
  Company Number: PHHY2015DE022272

PATIENT
  Age: 47 Year
  Sex: Female

DRUGS (9)
  1. EPIRUBICIN [Interacting]
     Active Substance: EPIRUBICIN
     Indication: BREAST CANCER
     Dosage: UNK
     Route: 065
     Dates: start: 200812
  2. SERTRALINE [Interacting]
     Active Substance: SERTRALINE HYDROCHLORIDE
     Indication: SLEEP DISORDER
  3. HYPERICUM [Interacting]
     Active Substance: ST. JOHN^S WORT
     Indication: SLEEP DISORDER
  4. DOCETAXEL. [Suspect]
     Active Substance: DOCETAXEL
     Indication: BREAST CANCER
     Dosage: UNK
     Route: 065
  5. HYPERICUM [Interacting]
     Active Substance: ST. JOHN^S WORT
     Indication: DEPRESSION
     Route: 065
  6. SERTRALINE [Interacting]
     Active Substance: SERTRALINE HYDROCHLORIDE
     Indication: DEPRESSION
     Dosage: 75 MG/DL, QD
     Route: 065
  7. EPIRUBICIN [Concomitant]
     Active Substance: EPIRUBICIN
     Indication: BREAST CANCER
     Dosage: UNK
     Route: 065
  8. TAMOXIFEN [Interacting]
     Active Substance: TAMOXIFEN
     Indication: BREAST CANCER
     Dosage: UNK
     Route: 065
     Dates: start: 200812
  9. TAMOXIFEN [Concomitant]
     Active Substance: TAMOXIFEN
     Indication: BREAST CANCER
     Dosage: UNK
     Route: 065

REACTIONS (18)
  - Fatigue [Not Recovered/Not Resolved]
  - Burning sensation [Unknown]
  - Libido decreased [Unknown]
  - Insomnia [Unknown]
  - Memory impairment [Unknown]
  - Arthralgia [Unknown]
  - Vulvovaginal dryness [Unknown]
  - Off label use [Unknown]
  - Stress [Unknown]
  - Anxiety [Unknown]
  - Condition aggravated [Not Recovered/Not Resolved]
  - Polyneuropathy [Unknown]
  - Disturbance in attention [Unknown]
  - Hot flush [Unknown]
  - Cognitive disorder [Unknown]
  - Hyperhidrosis [Unknown]
  - Depression [Unknown]
  - Menopausal disorder [Unknown]
